FAERS Safety Report 25330762 (Version 2)
Quarter: 2025Q3

REPORT INFORMATION
  Report Type: Spontaneous
  Country: US (occurrence: US)
  Receive Date: 20250519
  Receipt Date: 20250723
  Transmission Date: 20251020
  Serious: No
  Sender: PFIZER
  Company Number: US-PFIZER INC-202500101449

PATIENT
  Age: 51 Year
  Sex: Male

DRUGS (1)
  1. CIBINQO [Suspect]
     Active Substance: ABROCITINIB
     Indication: Dermatitis atopic
     Dosage: 100 MG, 1X/DAY
     Dates: start: 20240221

REACTIONS (4)
  - Skin haemorrhage [Unknown]
  - Impaired healing [Unknown]
  - Skin lesion [Unknown]
  - Actinic keratosis [Unknown]
